FAERS Safety Report 10417967 (Version 6)
Quarter: 2015Q2

REPORT INFORMATION
  Report Type: Report from Study
  Country: US (occurrence: US)
  Receive Date: 20140829
  Receipt Date: 20150618
  Transmission Date: 20150821
  Serious: Yes (Death, Hospitalization, Other)
  Sender: FDA-Public Use
  Company Number: US-BAYER-2014-039255

PATIENT
  Age: 71 Year
  Sex: Female
  Weight: 52.15 kg

DRUGS (9)
  1. ADEMPAS [Suspect]
     Active Substance: RIOCIGUAT
     Indication: PULMONARY ARTERIAL HYPERTENSION
     Dosage: 0.5 MG, TID
     Route: 048
     Dates: start: 20140228
  2. EPOPROSTENOL [Concomitant]
     Active Substance: EPOPROSTENOL
  3. WARFARIN [Concomitant]
     Active Substance: WARFARIN
  4. ADEMPAS [Suspect]
     Active Substance: RIOCIGUAT
     Indication: PULMONARY ARTERIAL HYPERTENSION
     Dosage: 1.5 MG, TID
     Route: 048
  5. ADEMPAS [Suspect]
     Active Substance: RIOCIGUAT
     Indication: PULMONARY ARTERIAL HYPERTENSION
     Dosage: 2.5 MG, TID
     Route: 048
     Dates: start: 20140303
  6. ADEMPAS [Suspect]
     Active Substance: RIOCIGUAT
     Indication: PULMONARY ARTERIAL HYPERTENSION
     Dosage: 2.5 MG, TID
     Route: 048
  7. ADEMPAS [Suspect]
     Active Substance: RIOCIGUAT
     Indication: PULMONARY ARTERIAL HYPERTENSION
     Dosage: 1 MG, TID
     Route: 048
  8. MACITENTAN [Concomitant]
     Active Substance: MACITENTAN
  9. ADEMPAS [Suspect]
     Active Substance: RIOCIGUAT
     Indication: PULMONARY ARTERIAL HYPERTENSION
     Dosage: 2 MG, TID
     Route: 048
     Dates: start: 20140303

REACTIONS (23)
  - Nausea [None]
  - Fatigue [Unknown]
  - Localised oedema [None]
  - Abdominal pain [None]
  - Oedema peripheral [None]
  - Anxiety [None]
  - Hypersomnia [None]
  - Vomiting [Recovered/Resolved]
  - Cardiac failure congestive [None]
  - Ascites [None]
  - Abdominal discomfort [None]
  - Musculoskeletal pain [None]
  - Headache [Unknown]
  - Pulmonary oedema [None]
  - Death [Fatal]
  - Hypotension [None]
  - Condition aggravated [None]
  - General physical health deterioration [None]
  - Oxygen saturation decreased [None]
  - Dyspnoea [None]
  - Device breakage [Unknown]
  - Epistaxis [None]
  - Diarrhoea [Recovered/Resolved]

NARRATIVE: CASE EVENT DATE: 20140328
